FAERS Safety Report 15418181 (Version 1)
Quarter: 2018Q3

REPORT INFORMATION
  Report Type: Spontaneous
  Country: US (occurrence: US)
  Receive Date: 20180913
  Receipt Date: 20180913
  Transmission Date: 20181010
  Serious: Yes (Other)
  Sender: FDA-Public Use
  Company Number: None

PATIENT
  Age: 81 Year
  Sex: Female
  Weight: 56.7 kg

DRUGS (1)
  1. ALENDRONATE 70MGS [Suspect]
     Active Substance: ALENDRONATE SODIUM
     Dates: start: 20180218, end: 20180823

REACTIONS (4)
  - Product use complaint [None]
  - Pain in extremity [None]
  - Ligament sprain [None]
  - Exostosis [None]

NARRATIVE: CASE EVENT DATE: 20180823
